FAERS Safety Report 11725943 (Version 3)
Quarter: 2015Q4

REPORT INFORMATION
  Report Type: Spontaneous
  Country: DE (occurrence: DE)
  Receive Date: 20151112
  Receipt Date: 20151202
  Transmission Date: 20160304
  Serious: Yes (Other)
  Sender: FDA-Public Use
  Company Number: DE-009507513-1511DEU004325

PATIENT
  Age: 75 Year
  Sex: Female

DRUGS (4)
  1. MIRTAZAPINE. [Suspect]
     Active Substance: MIRTAZAPINE
     Dosage: 30 MG/DAILY
     Route: 048
     Dates: start: 2013, end: 2013
  2. MELPERONE [Concomitant]
     Active Substance: MELPERONE
     Dosage: 25 MG/DAILY
  3. MIRTAZAPINE. [Suspect]
     Active Substance: MIRTAZAPINE
     Indication: DEPRESSION
     Dosage: INITIALLY UP TO 15 MG/DAILY
     Route: 048
  4. MIRTAZAPINE. [Suspect]
     Active Substance: MIRTAZAPINE
     Dosage: GRADUALLY REDUCED
     Route: 048
     Dates: start: 2013, end: 201305

REACTIONS (1)
  - Polyneuropathy [Recovered/Resolved]
